FAERS Safety Report 10066863 (Version 2)
Quarter: 2014Q2

REPORT INFORMATION
  Report Type: Report from Study
  Country: NL (occurrence: NL)
  Receive Date: 20140408
  Receipt Date: 20140425
  Transmission Date: 20141212
  Serious: Yes (Death, Other)
  Sender: FDA-Public Use
  Company Number: PHHY2014NL042302

PATIENT
  Sex: Female

DRUGS (3)
  1. ACLASTA [Suspect]
     Indication: OSTEOPOROSIS
     Dosage: 5 MG, ONCE PER 52 WEEKS
     Route: 042
     Dates: start: 20100429
  2. ACLASTA [Suspect]
     Dosage: 5 MG, ONCE PER 52 WEEKS
     Route: 042
     Dates: start: 20120426
  3. ACLASTA [Suspect]
     Dosage: 5 MG, ONCE PER 52 WEEKS
     Route: 042
     Dates: start: 20130417

REACTIONS (2)
  - Diet refusal [Fatal]
  - Wrist fracture [Unknown]
